FAERS Safety Report 9843084 (Version 3)
Quarter: 2014Q1

REPORT INFORMATION
  Report Type: Report from Study
  Country: US (occurrence: US)
  Receive Date: 20140124
  Receipt Date: 20140221
  Transmission Date: 20141002
  Serious: Yes (Hospitalization)
  Sender: FDA-Public Use
  Company Number: US-US-EMD SERONO, INC.-7260553

PATIENT
  Age: 43 Year
  Sex: Female

DRUGS (2)
  1. REBIF [Suspect]
     Indication: PRODUCT USED FOR UNKNOWN INDICATION
     Route: 058
     Dates: start: 20130919, end: 20131230
  2. REBIF [Suspect]
     Route: 058
     Dates: start: 201401

REACTIONS (2)
  - Migraine with aura [Recovered/Resolved]
  - Optic nerve disorder [Recovering/Resolving]
